FAERS Safety Report 4551792-2 (Version None)
Quarter: 2005Q1

REPORT INFORMATION
  Report Type: 
  Country: None (occurrence: None)
  Receive Date: 20050113
  Receipt Date: 20050110
  Transmission Date: 20050727
  Serious: Yes (Other)
  Sender: FDA-Public Use
  Company Number: 2005000542

PATIENT
  Age: 18 Year
  Sex: Female

DRUGS (4)
  1. QUILONUM RETARD [Suspect]
     Dosage: 9450MG SINGLE DOSE
     Route: 048
  2. RISPERDAL [Suspect]
     Dosage: 17.5MG SINGLE DOSE
     Route: 048
  3. TRILEPTAL [Suspect]
     Dosage: 11550MG SINGLE DOSE
     Route: 048
  4. CIPRALEX [Suspect]
     Dosage: 350MG SINGLE DOSE
     Route: 048

REACTIONS (5)
  - ILL-DEFINED DISORDER [None]
  - INTENTIONAL MISUSE [None]
  - OVERDOSE [None]
  - SOMNOLENCE [None]
  - SUICIDE ATTEMPT [None]
